FAERS Safety Report 25361166 (Version 4)
Quarter: 2025Q4

REPORT INFORMATION
  Report Type: Spontaneous
  Country: EU (occurrence: EU)
  Receive Date: 20250527
  Receipt Date: 20251114
  Transmission Date: 20260117
  Serious: Yes (Hospitalization, Other)
  Sender: RHYTHM PHARMACEUTICALS
  Company Number: EU-PPDUS-2024RHM000635

PATIENT
  Age: 24 Year
  Sex: Female
  Weight: 115 kg

DRUGS (22)
  1. IMCIVREE [Suspect]
     Active Substance: SETMELANOTIDE
     Indication: Obesity
     Dosage: 0.5 MILLIGRAM, QD
     Dates: start: 20241014
  2. IMCIVREE [Suspect]
     Active Substance: SETMELANOTIDE
     Dosage: 1 MILLIGRAM, QD (AT D15 VISIT)
  3. IMCIVREE [Suspect]
     Active Substance: SETMELANOTIDE
     Dosage: 1.5 MILLIGRAM, QD (AT M1 VISIT)
     Dates: start: 20241120
  4. IMCIVREE [Suspect]
     Active Substance: SETMELANOTIDE
     Dosage: 2.5 MILLIGRAM, QD (AT M3 VISIT)
  5. IMCIVREE [Suspect]
     Active Substance: SETMELANOTIDE
     Dosage: 2 MILLIGRAM, QD
     Dates: start: 20250406
  6. IMCIVREE [Suspect]
     Active Substance: SETMELANOTIDE
     Dosage: 3 MILLIGRAM, QD
     Dates: start: 20250514
  7. IMCIVREE [Suspect]
     Active Substance: SETMELANOTIDE
     Dosage: 2 MILLIGRAM, QD (AT M9 VISIT)
     Dates: start: 20250723
  8. IMCIVREE [Suspect]
     Active Substance: SETMELANOTIDE
     Dosage: 1.5 MILLIGRAM, QD (AT M12 VISIT)
     Dates: start: 20251017
  9. HYDROCORTISONE [Concomitant]
     Active Substance: HYDROCORTISONE
     Indication: Hypopituitarism
     Dosage: 10 MILLIGRAM, TID
     Route: 065
     Dates: start: 2005
  10. HYDROCORTISONE [Concomitant]
     Active Substance: HYDROCORTISONE
     Dosage: 1 DOSAGE FORMS, PRN
     Route: 065
     Dates: start: 20241025
  11. MINIRIN [Concomitant]
     Active Substance: DESMOPRESSIN ACETATE
     Indication: Hypopituitarism
     Dosage: 1 DOSAGE FORM, QD (120, IN THE EVENING)
     Route: 065
     Dates: start: 2005
  12. MINIRIN [Concomitant]
     Active Substance: DESMOPRESSIN ACETATE
     Dosage: 1 DOSAGE FORM, BID
     Route: 065
     Dates: start: 2005
  13. MINIRIN [Concomitant]
     Active Substance: DESMOPRESSIN ACETATE
     Dosage: 30 MILLIGRAM, QD (AT NOON)
     Route: 065
     Dates: start: 20241114
  14. MINIRIN [Concomitant]
     Active Substance: DESMOPRESSIN ACETATE
     Dosage: 120 MILLIGRAM, QD (IN THE EVENING)
     Route: 065
     Dates: start: 20241114
  15. MINIRIN [Concomitant]
     Active Substance: DESMOPRESSIN ACETATE
     Dosage: FROM 60 IN THE MORNING AND 120 IN THE EVENING TO A DECREASE AT 60 AT NOON
     Route: 065
     Dates: start: 20241201
  16. MINIRIN [Concomitant]
     Active Substance: DESMOPRESSIN ACETATE
     Dosage: 60 MCG-1/2 IN THE MORNING AND 1 IN  THE INVENING
  17. LEVOTHYROXINE [Concomitant]
     Active Substance: LEVOTHYROXINE
     Indication: Hypopituitarism
     Dosage: 10 MILLIGRAM, TID
     Dates: start: 2005
  18. LEVOTHYROXINE [Concomitant]
     Active Substance: LEVOTHYROXINE
     Dosage: 100 MICROGRAM
     Dates: start: 20250715
  19. LEVOTHYROXINE [Concomitant]
     Active Substance: LEVOTHYROXINE
     Dosage: 112 MICROGRAM
     Dates: start: 20250724
  20. CHOLECALCIFEROL [Concomitant]
     Active Substance: CHOLECALCIFEROL
     Indication: Vitamin D
     Dosage: 100000 UI/L, 1 VIAL QM
     Dates: start: 2005
  21. BRICANYL [Concomitant]
     Active Substance: TERBUTALINE SULFATE
     Indication: Asthma
     Dosage: UNK
     Route: 065
     Dates: start: 2024
  22. THYROXINE [Concomitant]
     Active Substance: LEVOTHYROXINE
     Indication: Product used for unknown indication
     Dosage: 125 MILLIGRAM, QD

REACTIONS (19)
  - Colitis [Unknown]
  - Cholestasis [Unknown]
  - Abdominal pain [Unknown]
  - Off label use [Not Recovered/Not Resolved]
  - Decreased appetite [Unknown]
  - Taste disorder [Unknown]
  - Aspartate aminotransferase increased [Not Recovered/Not Resolved]
  - Alanine aminotransferase increased [Not Recovered/Not Resolved]
  - Gamma-glutamyltransferase increased [Not Recovered/Not Resolved]
  - Abnormal loss of weight [Not Recovered/Not Resolved]
  - Overdose [Unknown]
  - Bradycardia [Not Recovered/Not Resolved]
  - Malnutrition [Not Recovered/Not Resolved]
  - Alopecia [Not Recovered/Not Resolved]
  - Constipation [Unknown]
  - Asthenia [Unknown]
  - Nausea [Unknown]
  - Melanoderma [Not Recovered/Not Resolved]
  - Skin hyperpigmentation [Not Recovered/Not Resolved]

NARRATIVE: CASE EVENT DATE: 20241001
